FAERS Safety Report 6916239-7 (Version None)
Quarter: 2010Q3

REPORT INFORMATION
  Report Type: 
  Country: None (occurrence: None)
  Receive Date: 20100810
  Receipt Date: 20100803
  Transmission Date: 20110219
  Serious: No
  Sender: FDA-Public Use
  Company Number: 2009BI040968

PATIENT
  Age: 53 Year
  Sex: Female

DRUGS (1)
  1. TYSABRI [Suspect]
     Indication: MULTIPLE SCLEROSIS
     Route: 042
     Dates: start: 20070112

REACTIONS (8)
  - BALANCE DISORDER [None]
  - DEPRESSION [None]
  - FALL [None]
  - GAIT DISTURBANCE [None]
  - MEMORY IMPAIRMENT [None]
  - MOOD SWINGS [None]
  - SPEECH DISORDER [None]
  - TEMPERATURE INTOLERANCE [None]
